FAERS Safety Report 7517951-1 (Version None)
Quarter: 2011Q2

REPORT INFORMATION
  Report Type: 
  Country: None (occurrence: None)
  Receive Date: 20110523
  Receipt Date: 20110510
  Transmission Date: 20111010
  Serious: Yes (Disabling, Other)
  Sender: FDA-Public Use
  Company Number: ALA_01393_2010

PATIENT
  Sex: Female

DRUGS (1)
  1. REGLAN [Suspect]
     Indication: GASTROOESOPHAGEAL REFLUX DISEASE
     Dosage: (DF)

REACTIONS (24)
  - INCORRECT DRUG ADMINISTRATION DURATION [None]
  - APATHY [None]
  - ECONOMIC PROBLEM [None]
  - DIZZINESS [None]
  - DYSPHAGIA [None]
  - BALANCE DISORDER [None]
  - RESTLESSNESS [None]
  - DRY MOUTH [None]
  - EXTRAPYRAMIDAL DISORDER [None]
  - SOMNOLENCE [None]
  - CONFUSIONAL STATE [None]
  - FALL [None]
  - ANXIETY [None]
  - TARDIVE DYSKINESIA [None]
  - PAIN [None]
  - MENTAL DISORDER [None]
  - CHOREA [None]
  - NERVOUS SYSTEM DISORDER [None]
  - MEMORY IMPAIRMENT [None]
  - DYSKINESIA [None]
  - DEFORMITY [None]
  - ACTIVITIES OF DAILY LIVING IMPAIRED [None]
  - AKATHISIA [None]
  - GRIMACING [None]
